FAERS Safety Report 5338549-X (Version None)
Quarter: 2007Q2

REPORT INFORMATION
  Report Type: 
  Country: None (occurrence: None)
  Receive Date: 20070530
  Receipt Date: 20070523
  Transmission Date: 20071010
  Serious: Yes (Other)
  Sender: FDA-Public Use
  Company Number: JP-AVENTIS-200710646JP

PATIENT
  Age: 75 Year
  Sex: Male

DRUGS (4)
  1. TAXOTERE [Suspect]
     Route: 013
  2. CISPLATIN [Concomitant]
     Route: 013
  3. RADIOTHERAPY [Concomitant]
     Dosage: DOSE: 30 GY/TOTAL
  4. UFT                                /01071701/ [Concomitant]
     Dosage: DOSE: 13800 MG/TOTAL
     Route: 048

REACTIONS (4)
  - ALTERED STATE OF CONSCIOUSNESS [None]
  - ANAEMIA HAEMOLYTIC AUTOIMMUNE [None]
  - BONE MARROW FAILURE [None]
  - HAEMOGLOBIN DECREASED [None]
